FAERS Safety Report 11468675 (Version 1)
Quarter: 2015Q3

REPORT INFORMATION
  Report Type: Spontaneous
  Country: CN (occurrence: CN)
  Receive Date: 20150908
  Receipt Date: 20150908
  Transmission Date: 20151125
  Serious: Yes (Other)
  Sender: FDA-Public Use
  Company Number: CN-ASTRAZENECA-2015SE86115

PATIENT
  Sex: Male
  Weight: 80 kg

DRUGS (1)
  1. ROSUVASTATIN [Suspect]
     Active Substance: ROSUVASTATIN
     Indication: CORONARY ARTERY DISEASE
     Route: 048
     Dates: start: 20141215, end: 20150116

REACTIONS (7)
  - Urine analysis abnormal [Unknown]
  - Hepatitis B surface antibody positive [Unknown]
  - Abdominal distension [Unknown]
  - Drug-induced liver injury [Recovered/Resolved]
  - Hepatitis B core antibody positive [Unknown]
  - Nausea [Unknown]
  - Chromaturia [Unknown]
